FAERS Safety Report 14014997 (Version 2)
Quarter: 2017Q3

REPORT INFORMATION
  Report Type: Spontaneous
  Country: US (occurrence: US)
  Receive Date: 20170927
  Receipt Date: 20170928
  Transmission Date: 20171128
  Serious: No
  Sender: FDA-Public Use
  Company Number: US-CIPLA LTD.-2017US08171

PATIENT

DRUGS (4)
  1. CALCIUM [Concomitant]
     Active Substance: CALCIUM
     Indication: BONE LOSS
     Dosage: 2000 MG, QD (7 DAYS WEEKLY)
     Route: 065
  2. POTASSIUM [Concomitant]
     Active Substance: POTASSIUM
     Indication: BONE LOSS
     Dosage: 20 MG, 3 TIMES A DAY
     Route: 065
  3. ALENDRONATE [Suspect]
     Active Substance: ALENDRONATE SODIUM
     Dosage: 70 MG, UNK
     Route: 048
  4. PROVEN TABLET [Concomitant]
     Indication: BONE LOSS
     Dosage: UNK
     Route: 065

REACTIONS (1)
  - Adverse event [Unknown]
